FAERS Safety Report 11448924 (Version 1)
Quarter: 2015Q3

REPORT INFORMATION
  Report Type: Spontaneous
  Country: US (occurrence: US)
  Receive Date: 20150902
  Receipt Date: 20150902
  Transmission Date: 20151125
  Serious: No
  Sender: FDA-Public Use
  Company Number: US-PFIZER INC-2015288583

PATIENT
  Age: 69 Year
  Sex: Male
  Weight: 122.45 kg

DRUGS (2)
  1. CELECOXIB. [Suspect]
     Active Substance: CELECOXIB
     Indication: BACK DISORDER
     Dosage: UNK
     Dates: end: 20150521
  2. CRESTOR [Concomitant]
     Active Substance: ROSUVASTATIN CALCIUM
     Dosage: UNK

REACTIONS (5)
  - Nausea [Recovered/Resolved]
  - Drug effect delayed [Recovered/Resolved]
  - Drug intolerance [Recovered/Resolved]
  - Flatulence [Recovered/Resolved]
  - Discomfort [Recovered/Resolved]

NARRATIVE: CASE EVENT DATE: 20150401
